FAERS Safety Report 8593379 (Version 2)
Quarter: 2014Q1

REPORT INFORMATION
  Report Type: Spontaneous
  Country: US (occurrence: None)
  Receive Date: 20120323
  Receipt Date: 20130305
  Transmission Date: 20141002
  Serious: Yes (Hospitalization, Other)
  Sender: FDA-Public Use
  Company Number: 163-21880-11031149

PATIENT
  Age: 79 Year
  Sex: Male
  Weight: 85.28 kg

DRUGS (13)
  1. REVLIMID [Suspect]
     Indication: PLASMA CELL MYELOMA
     Dosage: 25 MG, 21 IN 21 D, PO
     Route: 048
     Dates: start: 20080201, end: 20110901
  2. TIMOPTIC (TIMOLOL MALEATE) [Concomitant]
  3. ALPHAGAN (BRIMONIDINE TARTRATE) [Concomitant]
  4. COREG [Concomitant]
  5. COUMADIN [Concomitant]
  6. CYTOXAN [Concomitant]
  7. DEXAMETHASONE [Concomitant]
  8. DIOVAN [Concomitant]
  9. LUMIGAN (BIMATOPROST) [Concomitant]
  10. COMBIGAN [Concomitant]
  11. CYCLOPHOSPH [Concomitant]
  12. WARFARIN [Concomitant]
  13. OXYCODONE HCL (OXYCODONE HYDROCHLORIDE) [Concomitant]

REACTIONS (3)
  - Neuropathy peripheral [None]
  - Herpes zoster [None]
  - Drug ineffective [None]
